FAERS Safety Report 5327864-1 (Version None)
Quarter: 2007Q2

REPORT INFORMATION
  Report Type: 
  Country: None (occurrence: None)
  Receive Date: 20070517
  Receipt Date: 20070514
  Transmission Date: 20071010
  Serious: Yes (Other)
  Sender: FDA-Public Use
  Company Number: US-ASTRAZENECA-2007UW11419

PATIENT
  Age: 57 Year
  Sex: Male
  Weight: 83.5 kg

DRUGS (3)
  1. SEROQUEL [Suspect]
     Indication: ANXIETY
     Dosage: 25-800 MG DAILY
     Route: 048
     Dates: start: 20050101, end: 20070101
  2. LEVOTHYROXINE SODIUM [Concomitant]
  3. LITHIUM CARBONATE [Concomitant]

REACTIONS (10)
  - ASTHENIA [None]
  - CONFUSIONAL STATE [None]
  - DIZZINESS [None]
  - EYE IRRITATION [None]
  - HEPATIC ENZYME ABNORMAL [None]
  - HYPOTHYROIDISM [None]
  - ILL-DEFINED DISORDER [None]
  - INSOMNIA [None]
  - LYMPHADENOPATHY [None]
  - PYREXIA [None]
